FAERS Safety Report 5420663-1 (Version None)
Quarter: 2007Q3

REPORT INFORMATION
  Report Type: 
  Country: None (occurrence: None)
  Receive Date: 20070816
  Receipt Date: 20070801
  Transmission Date: 20080115
  Serious: Yes (Other)
  Sender: FDA-Public Use
  Company Number: SPV1-2007-03727

PATIENT
  Age: 14 Year
  Sex: Female
  Weight: 74.8 kg

DRUGS (2)
  1. VYVANSE [Suspect]
     Indication: ATTENTION DEFICIT/HYPERACTIVITY DISORDER
     Dosage: 30 MG, ONE DOSE, ORAL
     Route: 048
     Dates: start: 20070729, end: 20070729
  2. TOPAMAX [Concomitant]

REACTIONS (2)
  - DYSTONIA [None]
  - HYPERSENSITIVITY [None]
